FAERS Safety Report 4662307-2 (Version None)
Quarter: 2005Q2

REPORT INFORMATION
  Report Type: 
  Country: None (occurrence: None)
  Receive Date: 20050512
  Receipt Date: 20050502
  Transmission Date: 20051028
  Serious: Yes (Death, Life-Threatening, Hospitalization, Other)
  Sender: FDA-Public Use
  Company Number: 2004BI001093

PATIENT
  Age: 56 Year
  Sex: Male

DRUGS (7)
  1. ZEVALIN [Suspect]
     Indication: NON-HODGKIN'S LYMPHOMA
     Dosage: SEE IMAGE
     Route: 042
     Dates: start: 20040902, end: 20040902
  2. ZEVALIN [Suspect]
     Indication: NON-HODGKIN'S LYMPHOMA
     Dosage: SEE IMAGE
     Route: 042
     Dates: start: 20040909, end: 20040909
  3. CEFTRIAXONE [Concomitant]
  4. CLINDAMYCIN HYDROCHLORIDE [Concomitant]
  5. FILGRASTIM [Concomitant]
  6. LEVOFLOXACIN [Concomitant]
  7. FLUCONAZOLE [Concomitant]

REACTIONS (7)
  - FEBRILE NEUTROPENIA [None]
  - INTERVERTEBRAL DISC PROTRUSION [None]
  - MALIGNANT NEOPLASM PROGRESSION [None]
  - MULTI-ORGAN FAILURE [None]
  - PANCYTOPENIA [None]
  - RENAL FAILURE [None]
  - SEPSIS [None]
